FAERS Safety Report 6139856-3 (Version None)
Quarter: 2009Q1

REPORT INFORMATION
  Report Type: 
  Country: None (occurrence: None)
  Receive Date: 20090324
  Receipt Date: 20090315
  Transmission Date: 20090719
  Serious: Yes (Other)
  Sender: FDA-Public Use
  Company Number: DE-GDP-09405627

PATIENT
  Age: 84 Year
  Sex: Female

DRUGS (1)
  1. METVIX (METHYL AMINOLEVULINATE HYDROCHLORIDE) 16 % [Suspect]
     Indication: ACTINIC KERATOSIS
     Dosage: (1 DF TOPICAL)
     Route: 061

REACTIONS (1)
  - CEREBROVASCULAR ACCIDENT [None]
